FAERS Safety Report 13978900 (Version 1)
Quarter: 2017Q3

REPORT INFORMATION
  Report Type: Spontaneous
  Country: US (occurrence: US)
  Receive Date: 20170914
  Receipt Date: 20170914
  Transmission Date: 20171128
  Serious: No
  Sender: FDA-Public Use
  Company Number: US-ASTELLAS-2017US034826

PATIENT
  Age: 92 Year
  Sex: Male

DRUGS (3)
  1. XTANDI [Suspect]
     Active Substance: ENZALUTAMIDE
     Indication: PROSTATIC SPECIFIC ANTIGEN INCREASED
  2. XTANDI [Suspect]
     Active Substance: ENZALUTAMIDE
     Indication: PROSTATE CANCER METASTATIC
     Dosage: UNK UNK, UNKNOWN FREQ.
     Route: 065
     Dates: start: 2015
  3. XTANDI [Suspect]
     Active Substance: ENZALUTAMIDE
     Indication: MALIGNANT NEOPLASM OF SEMINAL VESICLE
     Route: 065
     Dates: start: 201707

REACTIONS (4)
  - Weight increased [Unknown]
  - Increased appetite [Unknown]
  - Micturition urgency [Unknown]
  - Pollakiuria [Unknown]

NARRATIVE: CASE EVENT DATE: 201707
